FAERS Safety Report 11359070 (Version 1)
Quarter: 2015Q3

REPORT INFORMATION
  Report Type: Spontaneous
  Country: US (occurrence: US)
  Receive Date: 20150807
  Receipt Date: 20150807
  Transmission Date: 20151125
  Serious: No
  Sender: FDA-Public Use
  Company Number: US-TOLMAR INC.-1040972

PATIENT
  Age: 19 Year
  Sex: Female

DRUGS (1)
  1. ADAPALENE. [Suspect]
     Active Substance: ADAPALENE
     Route: 061

REACTIONS (2)
  - Drug ineffective [Unknown]
  - Acne [Unknown]
